FAERS Safety Report 6671291-1 (Version None)
Quarter: 2010Q2

REPORT INFORMATION
  Report Type: 
  Country: None (occurrence: None)
  Receive Date: 20100407
  Receipt Date: 20100323
  Transmission Date: 20101027
  Serious: Yes (Death)
  Sender: FDA-Public Use
  Company Number: US-ROCHE-695262

PATIENT
  Sex: Female

DRUGS (3)
  1. BEVACIZUMAB [Suspect]
     Indication: OVARIAN CANCER
     Route: 042
     Dates: start: 20090122, end: 20090507
  2. ERLOTINIB [Suspect]
     Indication: OVARIAN CANCER
     Route: 065
     Dates: start: 20090528, end: 20100322
  3. CARBOPLATIN [Suspect]
     Indication: OVARIAN CANCER
     Route: 065
     Dates: start: 20090122, end: 20090507

REACTIONS (1)
  - CARDIAC ARREST [None]
